FAERS Safety Report 4306826-7 (Version None)
Quarter: 2004Q1

REPORT INFORMATION
  Report Type: 
  Country: None (occurrence: None)
  Receive Date: 20040225
  Receipt Date: 20030528
  Transmission Date: 20041129
  Serious: Yes (Hospitalization)
  Sender: FDA-Public Use
  Company Number: 2003IC000158

PATIENT
  Age: 79 Year
  Sex: Male

DRUGS (1)
  1. FLUOROURACIL [Suspect]
     Indication: COLON CANCER
     Dosage: ORAL
     Route: 048
     Dates: start: 20021115, end: 20030411

REACTIONS (1)
  - TRANSIENT ISCHAEMIC ATTACK [None]
